FAERS Safety Report 4956471-5 (Version None)
Quarter: 2006Q1

REPORT INFORMATION
  Report Type: 
  Country: None (occurrence: None)
  Receive Date: 20060328
  Receipt Date: 20060328
  Transmission Date: 20060701
  Serious: Yes (Other)
  Sender: FDA-Public Use
  Company Number: None

PATIENT
  Age: 73 Year
  Sex: Male
  Weight: 64.4108 kg

DRUGS (3)
  1. RITUXAN [Suspect]
     Indication: CHRONIC LYMPHOCYTIC LEUKAEMIA
     Dosage: ONCE EVERY 4 WEEKS INTRAVESICAL
     Route: 043
     Dates: start: 20050103, end: 20050612
  2. CYTOXAN [Concomitant]
  3. FLUDARA [Concomitant]

REACTIONS (2)
  - COUGH [None]
  - DRUG EFFECT DECREASED [None]
